FAERS Safety Report 4685987-4 (Version None)
Quarter: 2005Q2

REPORT INFORMATION
  Report Type: 
  Country: None (occurrence: None)
  Receive Date: 20050606
  Receipt Date: 20050520
  Transmission Date: 20051028
  Serious: Yes (Other)
  Sender: FDA-Public Use
  Company Number: S05-USA-02782-01

PATIENT

DRUGS (2)
  1. LEXAPRO [Suspect]
     Dosage: 20 MG QD PO
     Route: 048
  2. ABILIFY [Concomitant]

REACTIONS (2)
  - PARKINSONISM [None]
  - TREMOR [None]
